FAERS Safety Report 7429655-4 (Version None)
Quarter: 2011Q2

REPORT INFORMATION
  Report Type: 
  Country: None (occurrence: None)
  Receive Date: 20110421
  Receipt Date: 20110411
  Transmission Date: 20111010
  Serious: Yes (Hospitalization)
  Sender: FDA-Public Use
  Company Number: US-JNJFOC-20110406675

PATIENT
  Age: 30 Year
  Sex: Female
  Weight: 149.69 kg

DRUGS (1)
  1. TRINESSA [Suspect]
     Indication: CONTRACEPTION
     Dosage: 1 TAB QD
     Route: 065

REACTIONS (2)
  - PULMONARY EMBOLISM [None]
  - THROMBOSIS [None]
